FAERS Safety Report 25088804 (Version 5)
Quarter: 2025Q2

REPORT INFORMATION
  Report Type: Report from Study
  Country: US (occurrence: US)
  Receive Date: 20250318
  Receipt Date: 20250602
  Transmission Date: 20250717
  Serious: No
  Sender: SANDOZ
  Company Number: US-SANDOZ-SDZ2025US016514

PATIENT
  Sex: Male

DRUGS (16)
  1. OMNITROPE [Suspect]
     Active Substance: SOMATROPIN
     Indication: Growth hormone deficiency
     Dosage: 1.3 MG, QD
     Route: 058
     Dates: start: 20250313
  2. OMNITROPE [Suspect]
     Active Substance: SOMATROPIN
     Indication: Growth hormone deficiency
     Dosage: 1.3 MG, QD
     Route: 058
     Dates: start: 20250313
  3. OMNITROPE [Suspect]
     Active Substance: SOMATROPIN
     Indication: Growth hormone deficiency
     Dosage: 1.3 MG, QD
     Route: 058
     Dates: start: 20250313
  4. OMNITROPE [Suspect]
     Active Substance: SOMATROPIN
     Indication: Growth hormone deficiency
     Dosage: 1.3 MG, QD
     Route: 058
     Dates: start: 20250313
  5. OMNITROPE [Suspect]
     Active Substance: SOMATROPIN
     Dosage: 0.28 ML, QD
     Route: 058
  6. OMNITROPE [Suspect]
     Active Substance: SOMATROPIN
     Dosage: 0.28 ML, QD
     Route: 058
  7. OMNITROPE [Suspect]
     Active Substance: SOMATROPIN
     Dosage: 0.28 ML, QD
     Route: 058
  8. OMNITROPE [Suspect]
     Active Substance: SOMATROPIN
     Dosage: 0.28 ML, QD
     Route: 058
  9. OMNITROPE [Suspect]
     Active Substance: SOMATROPIN
     Indication: Short stature
     Dosage: 1.3 MG, QD (10 MG / 1.5 ML)
     Route: 058
     Dates: start: 20250303
  10. OMNITROPE [Suspect]
     Active Substance: SOMATROPIN
     Indication: Short stature
     Dosage: 1.3 MG, QD (10 MG / 1.5 ML)
     Route: 058
     Dates: start: 20250303
  11. OMNITROPE [Suspect]
     Active Substance: SOMATROPIN
     Indication: Short stature
     Dosage: 1.3 MG, QD (10 MG / 1.5 ML)
     Route: 058
     Dates: start: 20250303
  12. OMNITROPE [Suspect]
     Active Substance: SOMATROPIN
     Indication: Short stature
     Dosage: 1.3 MG, QD (10 MG / 1.5 ML)
     Route: 058
     Dates: start: 20250303
  13. OMNITROPE [Suspect]
     Active Substance: SOMATROPIN
     Indication: Hypopituitarism
     Dosage: UNK, QD
     Route: 058
     Dates: start: 20250321
  14. OMNITROPE [Suspect]
     Active Substance: SOMATROPIN
     Indication: Hypopituitarism
     Dosage: UNK, QD
     Route: 058
     Dates: start: 20250321
  15. OMNITROPE [Suspect]
     Active Substance: SOMATROPIN
     Indication: Hypopituitarism
     Dosage: UNK, QD
     Route: 058
     Dates: start: 20250321
  16. OMNITROPE [Suspect]
     Active Substance: SOMATROPIN
     Indication: Hypopituitarism
     Dosage: UNK, QD
     Route: 058
     Dates: start: 20250321

REACTIONS (9)
  - Injection site haemorrhage [Unknown]
  - Injection site discomfort [Unknown]
  - Injection site bruising [Unknown]
  - Drug ineffective [Unknown]
  - Therapy interrupted [Unknown]
  - Device leakage [Unknown]
  - Product dose omission issue [Unknown]
  - Wrong technique in device usage process [Unknown]
  - Exposure via skin contact [Unknown]

NARRATIVE: CASE EVENT DATE: 20250101
